FAERS Safety Report 8095539-4 (Version None)
Quarter: 2012Q1

REPORT INFORMATION
  Report Type: 
  Country: None (occurrence: None)
  Receive Date: 20120129
  Receipt Date: 20111229
  Transmission Date: 20120608
  Serious: No
  Sender: FDA-Public Use
  Company Number: US-ABBOTT-11P-163-0887742-00

PATIENT
  Age: 30 Year
  Sex: Female

DRUGS (8)
  1. PREDNISONE TAB [Concomitant]
     Dosage: TAPERING DOWN 10 MG A WEEK
     Dates: start: 20111217
  2. HUMIRA [Suspect]
     Indication: UVEITIS
     Dates: start: 20111216
  3. PREDNISONE TAB [Concomitant]
     Indication: PRODUCT USED FOR UNKNOWN INDICATION
  4. PRED FORTE [Concomitant]
     Indication: PRODUCT USED FOR UNKNOWN INDICATION
     Dosage: EVERY 3 HOURS
     Dates: start: 20111217
  5. MULTI-VITAMIN [Concomitant]
     Indication: PRODUCT USED FOR UNKNOWN INDICATION
     Dosage: DAILY
  6. PREDNISONE TAB [Concomitant]
     Dosage: TAPERING DOWN 10 MG A WEEK, WILL DECREASE TO 20 MG NEXT WEEK
  7. COMBIGAN [Concomitant]
     Indication: UVEITIS
     Dosage: RIGHT EYE
     Route: 047
  8. SPRINTEC [Concomitant]
     Indication: CONTRACEPTION

REACTIONS (4)
  - EYE DISORDER [None]
  - VISION BLURRED [None]
  - INJECTION SITE PAIN [None]
  - OCULAR HYPERAEMIA [None]
